FAERS Safety Report 24181691 (Version 1)
Quarter: 2024Q3

REPORT INFORMATION
  Report Type: Spontaneous
  Country: US (occurrence: US)
  Receive Date: 20240807
  Receipt Date: 20240807
  Transmission Date: 20241016
  Serious: Yes (Hospitalization, Other)
  Sender: BRISTOL MYERS SQUIBB
  Company Number: US-BRISTOL-MYERS SQUIBB COMPANY-2024-123628

PATIENT
  Age: 81 Year
  Sex: Female

DRUGS (1)
  1. POMALYST [Suspect]
     Active Substance: POMALIDOMIDE
     Indication: Plasma cell myeloma in remission
     Dosage: TAKE 1 CAPSULE BY MOUTH 1 TIME EVERY OTHER DAY FOR 21 DAYS ON AND 7 DAYS OFF
     Route: 048
     Dates: start: 202006

REACTIONS (3)
  - Drug ineffective [Unknown]
  - Hospitalisation [Unknown]
  - Off label use [Unknown]
